FAERS Safety Report 14126673 (Version 2)
Quarter: 2017Q4

REPORT INFORMATION
  Report Type: Not Available
  Country: US (occurrence: US)
  Receive Date: 20171025
  Receipt Date: 20171222
  Transmission Date: 20180321
  Serious: No
  Sender: FDA-Public Use
  Company Number: US-NEUROCRINE BIOSCIENCES INC.-2017NBI01212

PATIENT
  Age: 38 Year
  Sex: Female

DRUGS (2)
  1. INGREZZA [Suspect]
     Active Substance: VALBENAZINE
     Indication: TARDIVE DYSKINESIA
     Route: 048
     Dates: start: 20170801, end: 20170807
  2. INGREZZA [Suspect]
     Active Substance: VALBENAZINE
     Route: 048
     Dates: start: 20170808, end: 20171013

REACTIONS (3)
  - Drug effect decreased [Not Recovered/Not Resolved]
  - Akathisia [Unknown]
  - Alopecia [Unknown]

NARRATIVE: CASE EVENT DATE: 20170830
